FAERS Safety Report 25652760 (Version 1)
Quarter: 2025Q3

REPORT INFORMATION
  Report Type: Spontaneous
  Country: US (occurrence: US)
  Receive Date: 20250807
  Receipt Date: 20250807
  Transmission Date: 20251021
  Serious: No
  Sender: SANOFI AVENTIS
  Company Number: US-SA-2025SA229631

PATIENT
  Sex: Female
  Weight: 39.456 kg

DRUGS (9)
  1. DUPIXENT [Suspect]
     Active Substance: DUPILUMAB
     Indication: Product used for unknown indication
     Dosage: 200 MG, QOW
     Route: 058
  2. PROBIOTICS [PROBIOTICS NOS] [Concomitant]
  3. MELATONIN [Concomitant]
     Active Substance: MELATONIN
  4. TACROLIMUS [Concomitant]
     Active Substance: TACROLIMUS
  5. METRONIDAZOLE [Concomitant]
     Active Substance: METRONIDAZOLE
  6. ALBUTEROL SULFATE [Concomitant]
     Active Substance: ALBUTEROL SULFATE
  7. CETIRIZINE HCL [Concomitant]
     Active Substance: CETIRIZINE HYDROCHLORIDE
  8. SYMBICORT [Concomitant]
     Active Substance: BUDESONIDE\FORMOTEROL FUMARATE DIHYDRATE
  9. SPIRIVA [Concomitant]
     Active Substance: TIOTROPIUM BROMIDE MONOHYDRATE

REACTIONS (1)
  - Rash [Unknown]
